FAERS Safety Report 8135558-2 (Version None)
Quarter: 2012Q1

REPORT INFORMATION
  Report Type: 
  Country: None (occurrence: None)
  Receive Date: 20120214
  Receipt Date: 20120208
  Transmission Date: 20120608
  Serious: Yes (Hospitalization, Other)
  Sender: FDA-Public Use
  Company Number: US-BAYER-2011-102095

PATIENT
  Age: 47 Year
  Sex: Female
  Weight: 58.05 kg

DRUGS (6)
  1. ATIVAN [Concomitant]
     Indication: PHOBIA OF FLYING
     Dosage: 0.5 MG, UNK
  2. NEURONTIN [Concomitant]
  3. VICODIN [Concomitant]
     Indication: BACK PAIN
  4. MEDROL [Concomitant]
  5. ANTIBIOTICS [Concomitant]
  6. YAZ [Suspect]
     Dosage: UNK
     Dates: start: 20070101, end: 20090101

REACTIONS (4)
  - PULMONARY EMBOLISM [None]
  - PAIN [None]
  - PERINEURIAL CYST [None]
  - INJURY [None]
